FAERS Safety Report 5766857-7 (Version None)
Quarter: 2008Q2

REPORT INFORMATION
  Report Type: 
  Country: None (occurrence: None)
  Receive Date: 20080609
  Receipt Date: 20080501
  Transmission Date: 20081010
  Serious: No
  Sender: FDA-Public Use
  Company Number: 002#1#2008-00363

PATIENT
  Age: 51 Year
  Sex: Male
  Weight: 136.0791 kg

DRUGS (4)
  1. NEUPRO [Suspect]
     Indication: PARKINSON'S DISEASE
     Dosage: 8MG/24H,1 IN 1 D,TRANSDERMAL
     Route: 062
     Dates: end: 20080410
  2. STALEVO 100 [Concomitant]
  3. SIMETRAL [Concomitant]
  4. LIPITOR [Concomitant]

REACTIONS (3)
  - GAIT DISTURBANCE [None]
  - INTENTIONAL OVERDOSE [None]
  - MUSCLE RIGIDITY [None]
